FAERS Safety Report 6380120-5 (Version None)
Quarter: 2009Q3

REPORT INFORMATION
  Report Type: 
  Country: None (occurrence: None)
  Receive Date: 20090929
  Receipt Date: 20090915
  Transmission Date: 20100115
  Serious: Yes (Other)
  Sender: FDA-Public Use
  Company Number: CA-RANBAXY-2009RR-28065

PATIENT
  Age: 54 Year
  Sex: Male

DRUGS (14)
  1. ZIDOVUDINE [Suspect]
     Indication: HIV INFECTION
     Dosage: UNK
  2. LAMIVUDINE [Suspect]
     Indication: HIV INFECTION
     Dosage: UNK
  3. LAMIVUDINE [Suspect]
     Dosage: UNK
  4. STAVUDINE [Suspect]
     Indication: HIV INFECTION
     Dosage: UNK
  5. DIDANOSINE [Suspect]
     Indication: HIV INFECTION
     Dosage: UNK
  6. DIDANOSINE [Suspect]
     Dosage: UNK
  7. INDINAVIR [Suspect]
     Indication: HIV INFECTION
     Dosage: UNK
  8. LOPINAVIR AND RITONAVIR [Suspect]
     Indication: HIV INFECTION
     Dosage: UNK
  9. ABACAVIR SULFATE [Suspect]
     Indication: HIV INFECTION
     Dosage: UNK
  10. TDF [Suspect]
     Indication: HIV INFECTION
     Dosage: UNK
  11. SAQUINAVIR [Suspect]
     Indication: HIV INFECTION
     Dosage: UNK
  12. NEVIRAPINE [Suspect]
     Indication: HIV INFECTION
     Dosage: UNK
  13. ENFUVIRTIDE [Suspect]
     Indication: HIV INFECTION
     Dosage: UNK
  14. ATAZANAVIR [Suspect]
     Indication: HIV INFECTION
     Dosage: UNK

REACTIONS (1)
  - MITOCHONDRIAL TOXICITY [None]
